FAERS Safety Report 5638569-1 (Version None)
Quarter: 2008Q1

REPORT INFORMATION
  Report Type: 
  Country: None (occurrence: None)
  Receive Date: 20080226
  Receipt Date: 20071204
  Transmission Date: 20080703
  Serious: No
  Sender: FDA-Public Use
  Company Number: A0650452A

PATIENT
  Age: 58 Year
  Sex: Female

DRUGS (10)
  1. IMITREX [Suspect]
     Indication: MIGRAINE
     Dosage: 6MGML AS REQUIRED
     Route: 058
     Dates: start: 19920101
  2. CLONOPIN [Concomitant]
  3. XANAX [Concomitant]
  4. SINGULAIR [Concomitant]
  5. TOPAMAX [Concomitant]
  6. NEBULIZER [Concomitant]
  7. ESTROGEN [Concomitant]
  8. INHALER [Concomitant]
  9. IMITREX [Concomitant]
  10. DURAHIST PE [Concomitant]

REACTIONS (4)
  - DRUG INEFFECTIVE [None]
  - INJECTION SITE PAIN [None]
  - PARAESTHESIA [None]
  - PHARMACEUTICAL PRODUCT COMPLAINT [None]
